FAERS Safety Report 7061236-7 (Version None)
Quarter: 2010Q4

REPORT INFORMATION
  Report Type: 
  Country: None (occurrence: None)
  Receive Date: 20101026
  Receipt Date: 20101018
  Transmission Date: 20110411
  Serious: No
  Sender: FDA-Public Use
  Company Number: US-PFIZER INC-2010132673

PATIENT
  Sex: Female
  Weight: 86.168 kg

DRUGS (1)
  1. SYNAREL [Suspect]
     Indication: ADENOMYOSIS
     Dosage: 2 MG/ML, UNK
     Dates: start: 20100501

REACTIONS (2)
  - MENSTRUAL DISCOMFORT [None]
  - MIGRAINE [None]
